FAERS Safety Report 23700561 (Version 1)
Quarter: 2024Q2

REPORT INFORMATION
  Report Type: Report from Study
  Country: CO (occurrence: None)
  Receive Date: 20240403
  Receipt Date: 20240403
  Transmission Date: 20240715
  Serious: Yes (Hospitalization, Other)
  Sender: FDA-Public Use
  Company Number: 2024A075879

PATIENT
  Age: 31698 Day
  Sex: Female

DRUGS (1)
  1. ACALABRUTINIB [Suspect]
     Active Substance: ACALABRUTINIB
     Indication: Chronic lymphocytic leukaemia
     Route: 048
     Dates: start: 20231124

REACTIONS (4)
  - Fall [Unknown]
  - Craniocerebral injury [Recovering/Resolving]
  - Loss of consciousness [Unknown]
  - Haematoma [Recovering/Resolving]

NARRATIVE: CASE EVENT DATE: 20240322
